FAERS Safety Report 16973794 (Version 1)
Quarter: 2019Q4

REPORT INFORMATION
  Report Type: Spontaneous
  Country: FR (occurrence: FR)
  Receive Date: 20191030
  Receipt Date: 20191030
  Transmission Date: 20200122
  Serious: Yes (Hospitalization)
  Sender: FDA-Public Use
  Company Number: FR-ACCORD-159244

PATIENT
  Age: 35 Year
  Sex: Male
  Weight: 58 kg

DRUGS (3)
  1. FLUOROURACIL ACCORD [Suspect]
     Active Substance: FLUOROURACIL
     Indication: NASOPHARYNGEAL CANCER
     Dosage: STRENGTH: 50 MG/ML
     Route: 041
     Dates: start: 20190909, end: 20190914
  2. CISPLATINE MYLAN [Suspect]
     Active Substance: CISPLATIN
     Indication: NASOPHARYNGEAL CANCER
     Route: 041
     Dates: start: 20190909, end: 20190909
  3. DOCETAXEL ACCORD [Suspect]
     Active Substance: DOCETAXEL
     Indication: NASOPHARYNGEAL CANCER
     Route: 041
     Dates: start: 20190909, end: 20190909

REACTIONS (1)
  - Pancytopenia [Recovering/Resolving]

NARRATIVE: CASE EVENT DATE: 20190918
